FAERS Safety Report 9109406 (Version 3)
Quarter: 2013Q2

REPORT INFORMATION
  Report Type: Spontaneous
  Country: US (occurrence: US)
  Receive Date: 20130222
  Receipt Date: 20130415
  Transmission Date: 20140414
  Serious: Yes (Other)
  Sender: FDA-Public Use
  Company Number: US-JNJFOC-20121114522

PATIENT
  Age: 70 Year
  Sex: Male
  Weight: 72.58 kg

DRUGS (13)
  1. ZYTIGA [Suspect]
     Indication: PROSTATE CANCER METASTATIC
     Route: 048
     Dates: start: 20121124
  2. LOVENOX [Suspect]
     Indication: ANTICOAGULANT THERAPY
     Route: 058
  3. VITAMIN D [Concomitant]
     Route: 065
  4. VITAMIN C [Concomitant]
     Route: 065
  5. CALCIUM [Concomitant]
     Route: 065
  6. FUROSEMIDE [Concomitant]
     Indication: OEDEMA
     Route: 065
  7. PREDNISONE [Concomitant]
     Indication: PALLIATIVE CARE
     Dosage: NOT 5 MG TWICE A DAY
     Route: 065
     Dates: start: 20121124
  8. WARFARIN [Concomitant]
     Indication: THROMBOSIS PROPHYLAXIS
     Route: 065
  9. OMEPRAZOLE [Concomitant]
     Indication: GASTROOESOPHAGEAL REFLUX DISEASE
     Route: 065
  10. FLEXERIL [Concomitant]
     Indication: MUSCLE SPASMS
     Route: 065
  11. LUPRON [Concomitant]
     Indication: PROSTATE CANCER
     Route: 065
  12. SENNA [Concomitant]
     Route: 065
  13. XGEVA [Concomitant]
     Route: 065

REACTIONS (8)
  - Back pain [Recovered/Resolved]
  - Flank pain [Recovered/Resolved]
  - Blood urine present [Recovered/Resolved]
  - Malaise [Recovered/Resolved]
  - Headache [Recovered/Resolved]
  - Haematochezia [Recovered/Resolved]
  - Decreased appetite [Recovered/Resolved]
  - Feeling abnormal [Recovered/Resolved]
